FAERS Safety Report 6619052-3 (Version None)
Quarter: 2010Q1

REPORT INFORMATION
  Report Type: 
  Country: None (occurrence: None)
  Receive Date: 20100308
  Receipt Date: 20100222
  Transmission Date: 20100710
  Serious: Yes (Other)
  Sender: FDA-Public Use
  Company Number: JP-PFIZER INC-2010028012

PATIENT
  Age: 77 Year
  Sex: Male

DRUGS (1)
  1. GABAPEN [Suspect]
     Route: 048

REACTIONS (1)
  - PORIOMANIA [None]
